FAERS Safety Report 12545405 (Version 2)
Quarter: 2017Q1

REPORT INFORMATION
  Report Type: Spontaneous
  Country: US (occurrence: US)
  Receive Date: 20160711
  Receipt Date: 20170310
  Transmission Date: 20170428
  Serious: No
  Sender: FDA-Public Use
  Company Number: US-ACTELION-A-US2016-138808

PATIENT
  Age: 53 Year
  Sex: Female

DRUGS (11)
  1. DIOVAN [Concomitant]
     Active Substance: VALSARTAN
  2. AMARYL [Concomitant]
     Active Substance: GLIMEPIRIDE
  3. MULTIVITAMIN [Concomitant]
     Active Substance: VITAMINS
  4. LIPITOR [Concomitant]
     Active Substance: ATORVASTATIN CALCIUM
  5. VITAMIN D [Concomitant]
     Active Substance: CHOLECALCIFEROL
  6. METFORMIN [Concomitant]
     Active Substance: METFORMIN HYDROCHLORIDE
  7. TRADJENTA [Concomitant]
     Active Substance: LINAGLIPTIN
  8. CANAGLIFLOZIN [Concomitant]
     Active Substance: CANAGLIFLOZIN
  9. VALCHLOR [Suspect]
     Active Substance: MECHLORETHAMINE
     Indication: MYCOSIS FUNGOIDES
     Dosage: 4 X^S WEEKLY
     Route: 061
     Dates: start: 20150702
  10. INVOKANA [Concomitant]
     Active Substance: CANAGLIFLOZIN
  11. VITAMIN B [Concomitant]
     Active Substance: VITAMIN B

REACTIONS (3)
  - Drug dose omission [Unknown]
  - Influenza [Unknown]
  - Sunburn [Unknown]
